FAERS Safety Report 24562475 (Version 3)
Quarter: 2025Q1

REPORT INFORMATION
  Report Type: Report from Study
  Country: US (occurrence: US)
  Receive Date: 20241029
  Receipt Date: 20250124
  Transmission Date: 20250409
  Serious: Yes (Other)
  Sender: SUNOVION
  Company Number: US-SUMITOMO PHARMA SWITZERLAND GMBH-2024SPA004375

PATIENT

DRUGS (14)
  1. ORGOVYX [Suspect]
     Active Substance: RELUGOLIX
     Indication: Prostate cancer
     Dosage: 360 MG, SINGLE
     Route: 048
  2. ORGOVYX [Suspect]
     Active Substance: RELUGOLIX
     Dosage: 120 MG, QD
     Route: 048
     Dates: start: 202405
  3. AMLODIPINE [Concomitant]
     Active Substance: AMLODIPINE BESYLATE
     Route: 065
  4. BYSTOLIC [Concomitant]
     Active Substance: NEBIVOLOL HYDROCHLORIDE
     Route: 065
  5. CLARITIN-D NOS [Concomitant]
     Active Substance: LORATADINE\PSEUDOEPHEDRINE SULFATE
     Route: 065
  6. EPLERENONE [Concomitant]
     Active Substance: EPLERENONE
     Route: 065
  7. GABAPENTIN [Concomitant]
     Active Substance: GABAPENTIN
     Route: 065
  8. GLIPIZIDE [Concomitant]
     Active Substance: GLIPIZIDE
     Route: 065
  9. JARDIANCE [Concomitant]
     Active Substance: EMPAGLIFLOZIN
     Route: 065
  10. LISINOPRIL [Concomitant]
     Active Substance: LISINOPRIL
     Route: 065
  11. METFORMIN [Concomitant]
     Active Substance: METFORMIN HYDROCHLORIDE
     Route: 065
  12. RANOLAZINE [Concomitant]
     Active Substance: RANOLAZINE
     Route: 065
  13. LOW DOSE ASPIRIN [Concomitant]
     Active Substance: ASPIRIN
     Route: 065
  14. MAGNESIUM [Concomitant]
     Active Substance: MAGNESIUM
     Route: 065

REACTIONS (2)
  - Cardiac ablation [Unknown]
  - Hot flush [Unknown]
